FAERS Safety Report 14210825 (Version 1)
Quarter: 2017Q4

REPORT INFORMATION
  Report Type: Spontaneous
  Country: US (occurrence: US)
  Receive Date: 20171121
  Receipt Date: 20171121
  Transmission Date: 20180321
  Serious: No
  Sender: FDA-Public Use
  Company Number: US-BAUSCH-BL-2017-018777

PATIENT
  Age: 83 Year
  Sex: Female

DRUGS (2)
  1. LOTEMAX [Suspect]
     Active Substance: LOTEPREDNOL ETABONATE
     Indication: DRY EYE
  2. LOTEMAX [Suspect]
     Active Substance: LOTEPREDNOL ETABONATE
     Indication: SUPERFICIAL INJURY OF EYE
     Route: 047
     Dates: start: 201704

REACTIONS (6)
  - Papule [Unknown]
  - Blood pressure increased [Unknown]
  - Pruritus [Unknown]
  - Pigmentation disorder [Unknown]
  - Stress [Unknown]
  - Off label use [Not Recovered/Not Resolved]

NARRATIVE: CASE EVENT DATE: 2017
